FAERS Safety Report 19410809 (Version 3)
Quarter: 2021Q3

REPORT INFORMATION
  Report Type: Spontaneous
  Country: US (occurrence: US)
  Receive Date: 20210614
  Receipt Date: 20210708
  Transmission Date: 20211014
  Serious: Yes (Other)
  Sender: FDA-Public Use
  Company Number: US-BAYER-2021-157330

PATIENT
  Age: 20 Year
  Sex: Female

DRUGS (1)
  1. MIRENA [Suspect]
     Active Substance: LEVONORGESTREL
     Indication: CONTRACEPTION
     Dosage: 20 ?G PER DAY, CONTINUOUSLY
     Route: 015
     Dates: start: 20191227, end: 20210526

REACTIONS (8)
  - Pelvic pain [None]
  - Abdominal pain lower [None]
  - Dysmenorrhoea [None]
  - Device dislocation [Recovered/Resolved]
  - Medical device discomfort [None]
  - Amenorrhoea [Recovered/Resolved]
  - Pelvic pain [None]
  - Heavy menstrual bleeding [None]

NARRATIVE: CASE EVENT DATE: 2019
